FAERS Safety Report 14672888 (Version 2)
Quarter: 2018Q1

REPORT INFORMATION
  Report Type: Spontaneous
  Country: US (occurrence: US)
  Receive Date: 20180323
  Receipt Date: 20180331
  Transmission Date: 20180509
  Serious: Yes (Death, Life-Threatening, Hospitalization, Other)
  Sender: FDA-Public Use
  Company Number: US-AUROBINDO-AUR-APL-2018-015588

PATIENT
  Age: 74 Year
  Sex: Female

DRUGS (8)
  1. COLECALCIFEROL [Concomitant]
     Active Substance: CHOLECALCIFEROL
     Dosage: MORE THAN A YEAR
  2. HYDROCHLOROTHIAZIDE. [Concomitant]
     Active Substance: HYDROCHLOROTHIAZIDE
     Dosage: MORE THAN A YEAR
  3. METOPROLOL TARTRATE. [Concomitant]
     Active Substance: METOPROLOL TARTRATE
     Dosage: MORE THAN A YEAR
  4. SUCRALFATE. [Concomitant]
     Active Substance: SUCRALFATE
     Dosage: ()
  5. PANTOPRAZOLE [Suspect]
     Active Substance: PANTOPRAZOLE
     Indication: GASTROINTESTINAL HAEMORRHAGE
     Dosage: 40 MILLIGRAM, TWO TIMES A DAY
     Route: 048
  6. LISINOPRIL. [Concomitant]
     Active Substance: LISINOPRIL
     Dosage: MORE THAN A YEAR
  7. ACETYLSALICYLIC ACID [Concomitant]
     Active Substance: ASPIRIN
     Dosage: MORE THAN A YEAR
  8. DONEPEZIL. [Concomitant]
     Active Substance: DONEPEZIL
     Dosage: MORE THAN A YEAR

REACTIONS (3)
  - Hypersensitivity [Fatal]
  - Sepsis [Fatal]
  - Stevens-Johnson syndrome [Fatal]
